FAERS Safety Report 15340496 (Version 4)
Quarter: 2019Q2

REPORT INFORMATION
  Report Type: Report from Study
  Country: US (occurrence: US)
  Receive Date: 20180831
  Receipt Date: 20190419
  Transmission Date: 20190711
  Serious: Yes (Hospitalization, Other)
  Sender: FDA-Public Use
  Company Number: PHEH2018US035486

PATIENT
  Sex: Female

DRUGS (3)
  1. AFINITOR DISPERZ [Suspect]
     Active Substance: EVEROLIMUS
     Indication: ASTROCYTOMA, LOW GRADE
     Dosage: 2 MG, QD
     Route: 048
     Dates: start: 20170420
  2. ROCEPHIN [Suspect]
     Active Substance: CEFTRIAXONE SODIUM
     Indication: PNEUMONIA
     Route: 065
  3. AFINITOR DISPERZ [Suspect]
     Active Substance: EVEROLIMUS
     Indication: SEIZURE

REACTIONS (7)
  - Pyrexia [Unknown]
  - Attention deficit/hyperactivity disorder [Unknown]
  - Metapneumovirus infection [Unknown]
  - Seizure [Recovered/Resolved]
  - Hypersensitivity [Unknown]
  - Malaise [Unknown]
  - Atypical pneumonia [Unknown]
